FAERS Safety Report 6173720-9 (Version None)
Quarter: 2009Q2

REPORT INFORMATION
  Report Type: 
  Country: None (occurrence: None)
  Receive Date: 20090430
  Receipt Date: 20090422
  Transmission Date: 20091009
  Serious: Yes (Other)
  Sender: FDA-Public Use
  Company Number: PHHY2009TR14989

PATIENT

DRUGS (2)
  1. ZOMETA [Suspect]
     Indication: METASTASES TO BONE
  2. ZOMETA [Suspect]
     Indication: LUNG NEOPLASM MALIGNANT

REACTIONS (2)
  - OSTEONECROSIS [None]
  - TOOTH EXTRACTION [None]
